FAERS Safety Report 6510952-1 (Version None)
Quarter: 2009Q4

REPORT INFORMATION
  Report Type: 
  Country: None (occurrence: None)
  Receive Date: 20091222
  Receipt Date: 20090208
  Transmission Date: 20100525
  Serious: Yes (Other)
  Sender: FDA-Public Use
  Company Number: US-ASTRAZENECA-2009UW03586

PATIENT
  Sex: Female

DRUGS (1)
  1. CRESTOR [Suspect]
     Dosage: LOWEST DOSE EVERY OTHER DAY
     Route: 048

REACTIONS (1)
  - HEPATIC ENZYME INCREASED [None]
